FAERS Safety Report 4907063-5 (Version None)
Quarter: 2006Q1

REPORT INFORMATION
  Report Type: 
  Country: None (occurrence: None)
  Receive Date: 20060207
  Receipt Date: 20060116
  Transmission Date: 20060701
  Serious: Yes (Hospitalization)
  Sender: FDA-Public Use
  Company Number: US_0509122366

PATIENT
  Age: 52 Year
  Sex: Male
  Weight: 107.5 kg

DRUGS (2)
  1. ZYPREXA [Suspect]
     Indication: BIPOLAR I DISORDER
     Dosage: 10 MG, DAILY (1/D), ORAL; 15 MG, DAILY (1/D), ORAL
     Route: 048
     Dates: start: 20001024, end: 20040629
  2. ZYPREXA [Suspect]
     Indication: BIPOLAR I DISORDER
     Dosage: 10 MG, DAILY (1/D), ORAL; 15 MG, DAILY (1/D), ORAL
     Route: 048
     Dates: start: 20040629

REACTIONS (3)
  - CORONARY OSTIAL STENOSIS [None]
  - DIABETES MELLITUS NON-INSULIN-DEPENDENT [None]
  - MYOCARDIAL ISCHAEMIA [None]
